FAERS Safety Report 13969424 (Version 3)
Quarter: 2018Q1

REPORT INFORMATION
  Report Type: Report from Study
  Country: JP (occurrence: JP)
  Receive Date: 20170914
  Receipt Date: 20180109
  Transmission Date: 20180508
  Serious: Yes (Other)
  Sender: FDA-Public Use
  Company Number: JP-SYNEX-T201703624

PATIENT
  Age: 1 Year
  Sex: Male
  Weight: 8 kg

DRUGS (35)
  1. FUROSEMIDE. [Concomitant]
     Active Substance: FUROSEMIDE
     Indication: PRODUCT USED FOR UNKNOWN INDICATION
     Dosage: 2 MG, 1 TIME
     Route: 042
     Dates: start: 20161204, end: 20161205
  2. FUROSEMIDE. [Concomitant]
     Active Substance: FUROSEMIDE
     Dosage: 3 MG, 1 TIME
     Route: 042
     Dates: start: 20161206, end: 20161206
  3. VECURONIUM [Concomitant]
     Active Substance: VECURONIUM BROMIDE
     Indication: PRODUCT USED FOR UNKNOWN INDICATION
     Dosage: 0.75 MG/HR, CONTINUOUS
     Route: 042
     Dates: start: 20161202, end: 20161204
  4. NITRIC OXIDE. [Suspect]
     Active Substance: NITRIC OXIDE
     Dosage: 0.5 PPM
     Dates: start: 20161207, end: 20161207
  5. FUROSEMIDE. [Concomitant]
     Active Substance: FUROSEMIDE
     Dosage: 5 MG, 1 TIME
     Route: 042
     Dates: start: 20161206, end: 20161206
  6. BOSMIN [Concomitant]
     Active Substance: EPINEPHRINE
     Indication: PRODUCT USED FOR UNKNOWN INDICATION
     Dosage: 25 G/HR, CONTINUOUS
     Route: 042
     Dates: start: 20161203, end: 20161203
  7. PRECEDEX [Concomitant]
     Active Substance: DEXMEDETOMIDINE HYDROCHLORIDE
     Indication: PRODUCT USED FOR UNKNOWN INDICATION
     Dosage: 7.8 G/HR, CONTINUOUS
     Route: 042
     Dates: start: 20161203, end: 20161204
  8. ALBUMIN [Concomitant]
     Active Substance: ALBUMIN HUMAN
     Dosage: 5 ML/HR, CONTINUOUS (20%)
     Route: 042
     Dates: start: 20161204, end: 20161204
  9. VENOGLOBULIN IH [Concomitant]
     Active Substance: HUMAN IMMUNOGLOBULIN G
     Indication: PRODUCT USED FOR UNKNOWN INDICATION
     Dosage: 3 G, 1 TIME
     Route: 042
     Dates: start: 20161205, end: 20161205
  10. RINDERON V [Concomitant]
     Active Substance: BETAMETHASONE VALERATE
     Indication: PRODUCT USED FOR UNKNOWN INDICATION
     Dosage: 1.9 MG, 2 TIMES A DAY
     Route: 042
     Dates: start: 20161205
  11. BOSMIN [Concomitant]
     Active Substance: EPINEPHRINE
     Dosage: 10 G/HR, CONTINUOUS
     Route: 042
     Dates: start: 20161206, end: 20161206
  12. SOLU-CORTEF [Concomitant]
     Active Substance: HYDROCORTISONE SODIUM SUCCINATE
     Indication: PRODUCT USED FOR UNKNOWN INDICATION
     Dosage: 80 UG, 3 TIMES A DAY
     Route: 042
     Dates: start: 20161203, end: 20161204
  13. NITRIC OXIDE. [Suspect]
     Active Substance: NITRIC OXIDE
     Indication: PULMONARY HYPERTENSION
     Dosage: 10 PPM
     Dates: start: 20161203, end: 20161203
  14. FAMOTIDINE. [Concomitant]
     Active Substance: FAMOTIDINE
     Indication: PRODUCT USED FOR UNKNOWN INDICATION
     Dosage: 1.9 MG, 2 TIMES A DAY
     Route: 042
     Dates: start: 20161202
  15. MIDAZOLAM [Concomitant]
     Active Substance: MIDAZOLAM HYDROCHLORIDE
     Indication: PRODUCT USED FOR UNKNOWN INDICATION
     Dosage: UNK
  16. MEROPENEM. [Concomitant]
     Active Substance: MEROPENEM
     Indication: PRODUCT USED FOR UNKNOWN INDICATION
     Dosage: 250 MG, 3 TIMES A DAY
     Route: 042
     Dates: start: 20161205, end: 20161205
  17. VECURONIUM [Concomitant]
     Active Substance: VECURONIUM BROMIDE
     Dosage: 0.83 MG/HR, CONTINUOUS
     Route: 042
     Dates: start: 20161205, end: 20161220
  18. INOVAN [Concomitant]
     Active Substance: DOPAMINE HYDROCHLORIDE
     Indication: PRODUCT USED FOR UNKNOWN INDICATION
     Dosage: 2.3 MG/HR, CONTINUOUS
     Route: 042
     Dates: start: 20161202, end: 20161220
  19. SALINE [Concomitant]
     Active Substance: SODIUM CHLORIDE
     Indication: PRODUCT USED FOR UNKNOWN INDICATION
     Dosage: 40 ML SALINE WITH NOVOLIN R 2 U
     Route: 042
     Dates: start: 20161203, end: 20161204
  20. NITRIC OXIDE. [Suspect]
     Active Substance: NITRIC OXIDE
     Dosage: 1 PPM
     Dates: start: 20161204, end: 20161205
  21. NITRIC OXIDE. [Suspect]
     Active Substance: NITRIC OXIDE
     Dosage: 5 PPM
     Dates: start: 20161205, end: 20161205
  22. NITRIC OXIDE. [Suspect]
     Active Substance: NITRIC OXIDE
     Dosage: 1 PPM
     Dates: start: 20161207, end: 20161207
  23. VANCOMYCIN [Concomitant]
     Active Substance: VANCOMYCIN
     Indication: PRODUCT USED FOR UNKNOWN INDICATION
     Dosage: 80 MG, 4 TIMES A DAY
     Route: 042
     Dates: start: 20161205, end: 20161205
  24. PRECEDEX [Concomitant]
     Active Substance: DEXMEDETOMIDINE HYDROCHLORIDE
     Dosage: 4.8 G/HR, CONTINUOUS
     Route: 042
     Dates: start: 20161205, end: 20161205
  25. FENTANYL. [Concomitant]
     Active Substance: FENTANYL
     Indication: PRODUCT USED FOR UNKNOWN INDICATION
     Dosage: 15G/HR, CONTINUOUS
     Route: 042
     Dates: start: 20161202, end: 20161220
  26. NITRIC OXIDE. [Suspect]
     Active Substance: NITRIC OXIDE
     Dosage: 10 PPM
     Dates: start: 20161205, end: 20161206
  27. PROTAMINE [Concomitant]
     Active Substance: PROTAMINE
     Indication: PRODUCT USED FOR UNKNOWN INDICATION
     Dosage: UNK
     Route: 065
  28. NITRIC OXIDE. [Suspect]
     Active Substance: NITRIC OXIDE
     Dosage: 5 PPM
     Dates: start: 20161203, end: 20161204
  29. HEPARIN [Concomitant]
     Active Substance: HEPARIN SODIUM
     Indication: PRODUCT USED FOR UNKNOWN INDICATION
     Dosage: UNK
     Route: 065
  30. BOSMIN [Concomitant]
     Active Substance: EPINEPHRINE
     Dosage: 15 G/HR, CONTINUOUS
     Route: 042
     Dates: start: 20161204, end: 20161205
  31. ALBUMIN [Concomitant]
     Active Substance: ALBUMIN HUMAN
     Indication: PRODUCT USED FOR UNKNOWN INDICATION
     Dosage: 3 ML/HR, CONTINUOUS (20%)
     Route: 042
     Dates: start: 20161203, end: 20161203
  32. NOVOLIN R [Concomitant]
     Active Substance: INSULIN HUMAN
     Indication: PRODUCT USED FOR UNKNOWN INDICATION
     Dosage: 0.7 MG, CONTINUOUS WITH SALINE 40 ML
     Route: 042
     Dates: start: 20161203, end: 20161203
  33. NITRIC OXIDE. [Suspect]
     Active Substance: NITRIC OXIDE
     Dosage: 5 PPM
     Dates: start: 20161206, end: 20161207
  34. CALCICOL [Concomitant]
     Active Substance: CALCIUM GLUCONATE
     Indication: PRODUCT USED FOR UNKNOWN INDICATION
     Dosage: 3 ML/HR, CONTINUOUS WITH  5% SUGAR SOLUTION 40 ML
     Route: 042
     Dates: start: 20161204, end: 20161220
  35. NICHIPHAGEN [Concomitant]
     Active Substance: AMMONIUM GLYCYRRHIZATE\CYSTEINE HYDROCHLORIDE\GLYCINE
     Indication: PRODUCT USED FOR UNKNOWN INDICATION
     Dosage: 20 ML, 1 TIME
     Route: 042
     Dates: start: 20161203, end: 20161203

REACTIONS (1)
  - Acute kidney injury [Recovered/Resolved]

NARRATIVE: CASE EVENT DATE: 20161203
